FAERS Safety Report 8557127-2 (Version None)
Quarter: 2012Q3

REPORT INFORMATION
  Report Type: 
  Country: None (occurrence: None)
  Receive Date: 20120801
  Receipt Date: 20120724
  Transmission Date: 20120928
  Serious: Yes (Life-Threatening, Hospitalization, Other)
  Sender: FDA-Public Use
  Company Number: JP-BAYER-2012-067146

PATIENT
  Age: 76 Year
  Sex: Male
  Weight: 52 kg

DRUGS (5)
  1. CANDESARTAN CILEXETIL [Suspect]
     Dosage: UNK
     Route: 048
  2. ASPIRIN [Suspect]
     Indication: CEREBRAL INFARCTION
     Dosage: DAILY DOSE 100 MG
     Route: 048
  3. CEFAZOLIN SODIUM [Suspect]
     Dosage: DAILY DOSE 3 DF
     Route: 048
  4. LANSOPRAZOLE [Suspect]
     Dosage: DAILY DOSE 15 MG
     Route: 048
  5. POLYFUL [Suspect]
     Dosage: DAILY DOSE 1500 MG
     Route: 048

REACTIONS (7)
  - SPLENIC HAEMORRHAGE [None]
  - PANCREATIC PSEUDOCYST [None]
  - HAEMATEMESIS [None]
  - GASTRIC ULCER PERFORATION [None]
  - GASTRIC ULCER HAEMORRHAGE [None]
  - ABDOMINAL PAIN [None]
  - SHOCK HAEMORRHAGIC [None]
